APPROVED DRUG PRODUCT: CEPHALEXIN
Active Ingredient: CEPHALEXIN
Strength: EQ 250MG BASE/5ML **Federal Register determination that product was not discontinued or withdrawn for safety or effectiveness reasons*
Dosage Form/Route: FOR SUSPENSION;ORAL
Application: A062117 | Product #003
Applicant: FACTA FARMACEUTICI SPA
Approved: Approved Prior to Jan 1, 1982 | RLD: No | RS: No | Type: DISCN